FAERS Safety Report 5870079-9 (Version None)
Quarter: 2008Q3

REPORT INFORMATION
  Report Type: 
  Country: None (occurrence: None)
  Receive Date: 20080904
  Receipt Date: 20080822
  Transmission Date: 20090109
  Serious: Yes (Hospitalization)
  Sender: FDA-Public Use
  Company Number: DE-PFIZER INC-2008070346

PATIENT
  Age: 46 Year
  Sex: Female

DRUGS (2)
  1. LYRICA [Suspect]
     Indication: ANXIETY DISORDER
     Route: 048
     Dates: start: 20080101, end: 20080817
  2. ALL OTHER THERAPEUTIC PRODUCTS [Concomitant]

REACTIONS (5)
  - DIARRHOEA [None]
  - NASOPHARYNGITIS [None]
  - UNEVALUABLE EVENT [None]
  - WEIGHT DECREASED [None]
  - WITHDRAWAL SYNDROME [None]
